FAERS Safety Report 12294716 (Version 1)
Quarter: 2016Q2

REPORT INFORMATION
  Report Type: Spontaneous
  Country: US (occurrence: None)
  Receive Date: 20160421
  Receipt Date: 20160421
  Transmission Date: 20160815
  Serious: Yes (Hospitalization)
  Sender: FDA-Public Use
  Company Number: None

PATIENT
  Age: 67 Year
  Sex: Female
  Weight: 78.02 kg

DRUGS (10)
  1. PROBIOTICS [Concomitant]
     Active Substance: PROBIOTICS NOS
  2. ANTI-CANDIDA FORMULAS [Concomitant]
  3. ZYFLAMEND [Concomitant]
  4. SYMBICORT [Suspect]
     Active Substance: BUDESONIDE\FORMOTEROL FUMARATE DIHYDRATE
     Route: 055
  5. RHODIOLA ROOT [Concomitant]
  6. GINSENG [Concomitant]
     Active Substance: ASIAN GINSENG
  7. TYLENOL WITH CODEINE [Concomitant]
     Active Substance: ACETAMINOPHEN\CODEINE PHOSPHATE
  8. NAC [Concomitant]
  9. ONE-A-DAY VIT-MIN FORMULATION [Concomitant]
  10. OMEGABRITE [Concomitant]

REACTIONS (4)
  - Feeling abnormal [None]
  - Vitamin K decreased [None]
  - Cushingoid [None]
  - Blood cortisol increased [None]

NARRATIVE: CASE EVENT DATE: 20160222
